FAERS Safety Report 20337829 (Version 1)
Quarter: 2022Q1

REPORT INFORMATION
  Report Type: Spontaneous
  Country: GB (occurrence: GB)
  Receive Date: 20220114
  Receipt Date: 20220114
  Transmission Date: 20220424
  Serious: Yes (Other)
  Sender: FDA-Public Use
  Company Number: GB-BAXTER-2020BAX017657

PATIENT
  Age: 51 Year
  Sex: Male
  Weight: 53 kg

DRUGS (160)
  1. SODIUM CHLORIDE [Suspect]
     Active Substance: SODIUM CHLORIDE
     Indication: Medication dilution
     Dosage: 0.9 %, UNK
     Route: 065
     Dates: start: 20200825, end: 20200825
  2. SODIUM CHLORIDE [Suspect]
     Active Substance: SODIUM CHLORIDE
     Dosage: DOSE RE-INTRODUCED
     Route: 065
  3. SODIUM CHLORIDE [Suspect]
     Active Substance: SODIUM CHLORIDE
     Dosage: UNKNOWN
     Route: 065
     Dates: start: 20200825, end: 20200825
  4. SODIUM CHLORIDE [Suspect]
     Active Substance: SODIUM CHLORIDE
     Dosage: UNKNOWN
     Route: 065
     Dates: start: 20200825, end: 20200825
  5. SODIUM CHLORIDE [Suspect]
     Active Substance: SODIUM CHLORIDE
     Dosage: UNK
     Route: 042
     Dates: start: 20200825, end: 20200825
  6. SODIUM CHLORIDE [Suspect]
     Active Substance: SODIUM CHLORIDE
     Dosage: UNKNOWN
     Route: 042
     Dates: start: 20200825
  7. SODIUM CHLORIDE [Suspect]
     Active Substance: SODIUM CHLORIDE
     Dosage: DRUG RE-INTRODUCED
     Route: 042
  8. CALCIUM CARBONATE\CHOLECALCIFEROL [Suspect]
     Active Substance: CALCIUM CARBONATE\CHOLECALCIFEROL
     Indication: Mineral supplementation
     Dosage: TABLET 2UNK, TABLET(1D), PHARMACEUTICAL FORM: TABLET (245)
     Route: 065
  9. CALCIUM CARBONATE\CHOLECALCIFEROL [Suspect]
     Active Substance: CALCIUM CARBONATE\CHOLECALCIFEROL
     Dosage: 1 DF (TABLET(1D); PHARMACEUTICAL FORM: TABLET (245)
     Route: 065
  10. CALCIUM CARBONATE\CHOLECALCIFEROL [Suspect]
     Active Substance: CALCIUM CARBONATE\CHOLECALCIFEROL
     Dosage: 1 TABLET
     Route: 065
  11. CALCIUM CARBONATE\CHOLECALCIFEROL [Suspect]
     Active Substance: CALCIUM CARBONATE\CHOLECALCIFEROL
     Dosage: UNK, UNK, QD, QD1 DF, QD, PHARMACEUTICAL FORM: 245 (TABLET)
     Route: 065
  12. CALCIUM CARBONATE\CHOLECALCIFEROL [Suspect]
     Active Substance: CALCIUM CARBONATE\CHOLECALCIFEROL
     Dosage: TABLET 2 (2 DOSAGE FORMS), PHARMACEUTICAL FORM: TABLET (245)
     Route: 065
  13. CALCIUM CARBONATE\CHOLECALCIFEROL [Suspect]
     Active Substance: CALCIUM CARBONATE\CHOLECALCIFEROL
     Dosage: 1 DOSAGE FORM, QD (TABLET
     Route: 065
  14. CALCIUM CARBONATE\CHOLECALCIFEROL [Suspect]
     Active Substance: CALCIUM CARBONATE\CHOLECALCIFEROL
     Dosage: 2 DF, QD (TABLET 2 (2 DOSAGE FORMS))
     Route: 065
  15. CALCIUM CARBONATE\CHOLECALCIFEROL [Suspect]
     Active Substance: CALCIUM CARBONATE\CHOLECALCIFEROL
     Dosage: UNK, PHARMACEUTICAL FORM: TABLET (245)
     Route: 065
  16. CALCIUM CARBONATE\CHOLECALCIFEROL [Suspect]
     Active Substance: CALCIUM CARBONATE\CHOLECALCIFEROL
     Dosage: 1 DF (TABLET(1D); 1DF)
     Route: 065
  17. CALCIUM CARBONATE\CHOLECALCIFEROL [Suspect]
     Active Substance: CALCIUM CARBONATE\CHOLECALCIFEROL
     Dosage: 1 DF, QD
     Route: 065
  18. CALCIUM CARBONATE\CHOLECALCIFEROL [Suspect]
     Active Substance: CALCIUM CARBONATE\CHOLECALCIFEROL
     Dosage: UNK DF, QD
     Route: 065
  19. CALCIUM CARBONATE\CHOLECALCIFEROL [Suspect]
     Active Substance: CALCIUM CARBONATE\CHOLECALCIFEROL
     Dosage: 1 DF; QD TABLETS
     Route: 065
  20. CALCIUM CARBONATE\CHOLECALCIFEROL [Suspect]
     Active Substance: CALCIUM CARBONATE\CHOLECALCIFEROL
     Dosage: 2 DOSAGE FORM, QD (TABLET 2 UNK)
     Route: 065
  21. CALCIUM CARBONATE\CHOLECALCIFEROL [Suspect]
     Active Substance: CALCIUM CARBONATE\CHOLECALCIFEROL
     Dosage: 1 DF, QD
     Route: 048
  22. APREPITANT [Suspect]
     Active Substance: APREPITANT
     Indication: Supportive care
     Dosage: D2 80MG IN TOTAL
     Route: 065
     Dates: start: 20200825
  23. APREPITANT [Suspect]
     Active Substance: APREPITANT
     Indication: Mineral supplementation
     Dosage: D1, 125 MG, 1X IN TOTAL
     Route: 065
     Dates: start: 20200826
  24. APREPITANT [Suspect]
     Active Substance: APREPITANT
     Dosage: 1 UNK, QD
     Route: 065
  25. APREPITANT [Suspect]
     Active Substance: APREPITANT
     Dosage: D2 (80 MG), IN TOTAL
     Route: 065
     Dates: start: 20200826
  26. APREPITANT [Suspect]
     Active Substance: APREPITANT
     Dosage: D1 (125 MG)/125 MG, 1X; IN TOTAL/D1
     Route: 065
     Dates: start: 20200825
  27. APREPITANT [Suspect]
     Active Substance: APREPITANT
     Dosage: 80 MG, (D2) SINGLE (IN TOTAL)
     Route: 065
     Dates: start: 20200825
  28. APREPITANT [Suspect]
     Active Substance: APREPITANT
     Dosage: D1 (125 MG)
     Route: 065
     Dates: start: 20200826
  29. APREPITANT [Suspect]
     Active Substance: APREPITANT
     Dosage: D1 (125 MG)/125 MG, 1X; IN TOTAL/D1
     Route: 065
     Dates: start: 20200825
  30. APREPITANT [Suspect]
     Active Substance: APREPITANT
     Dosage: 125 MG, (D1 (125 MG)/125 MG, 1X; IN TOTAL/D1)
     Route: 065
     Dates: start: 20200825
  31. APREPITANT [Suspect]
     Active Substance: APREPITANT
     Dosage: D2 (80MG), IN TOTAL
     Route: 065
     Dates: start: 20200826
  32. APREPITANT [Suspect]
     Active Substance: APREPITANT
     Dosage: 125 MG (125 MG (D1) SINGLE (D1 (125 MG)/125 MG,1X IN TOTAL)
     Route: 065
     Dates: start: 20200826
  33. APREPITANT [Suspect]
     Active Substance: APREPITANT
     Route: 065
  34. APREPITANT [Suspect]
     Active Substance: APREPITANT
     Route: 065
  35. CALCIUM [Suspect]
     Active Substance: CALCIUM
     Indication: Mineral supplementation
     Dosage: TABLET, PHARMACEUTICAL FORM: TABLET (245)
     Route: 065
  36. CALCIUM [Suspect]
     Active Substance: CALCIUM
     Indication: Mineral supplementation
     Dosage: TABLET. UNK, QD, (UNK UNK, QD), PHARMACEUTICAL FORM: TABLET (245)
     Route: 065
  37. CALCIUM [Suspect]
     Active Substance: CALCIUM
     Indication: Nutritional supplementation
     Dosage: TABLET. UNK, QD, (UNK UNK, QD), PHARMACEUTICAL FORM: TABLET (245)
     Route: 065
  38. CALCIUM [Suspect]
     Active Substance: CALCIUM
     Dosage: TABLET. UNK, QD, (UNK UNK, QD)PHARMACEUTICAL FORM: TABLET (245)
     Route: 065
  39. CALCIUM [Suspect]
     Active Substance: CALCIUM
     Dosage: 1 UNK, QD, PHARMACEUTICAL FORM: TABLET (245)
     Route: 065
  40. CALCIUM [Suspect]
     Active Substance: CALCIUM
     Dosage: 8 DF, QD, PHARMACEUTICAL FORM: TABLET (245)
     Route: 065
  41. CALCIUM [Suspect]
     Active Substance: CALCIUM
     Dosage: 1 DF, QD, PHARMACEUTICAL FORM: TABLET (245)
     Route: 065
  42. CALCIUM [Suspect]
     Active Substance: CALCIUM
     Dosage: 2 DF, QD, ((2 DF, QD (TABLET), TABLET 2UNK))  PHARMACEUTICAL FORM: TABLET (245)5
     Route: 065
  43. CALCIUM [Suspect]
     Active Substance: CALCIUM
     Dosage: 1 DOSAGE FORM, ONCE A DAY
     Route: 065
  44. CALCIUM [Suspect]
     Active Substance: CALCIUM
     Dosage: 8 DF, QD, DOSAGE TEXT: TABLET
     Route: 065
  45. CALCIUM [Suspect]
     Active Substance: CALCIUM
     Dosage: 1 DF, QD, TABLET
     Route: 065
  46. CALCIUM [Suspect]
     Active Substance: CALCIUM
     Dosage: 1 UNK, QD
     Route: 065
  47. CALCIUM [Suspect]
     Active Substance: CALCIUM
     Dosage: 1 DF, QD
     Route: 065
  48. CALCIUM [Suspect]
     Active Substance: CALCIUM
     Dosage: 2 DF, QD, ((2 DF, QD (TABLET), TABLET 2UNK))
     Route: 065
  49. CALCIUM [Suspect]
     Active Substance: CALCIUM
     Dosage: UNK, QD, (UNK UNK, QD)
     Route: 065
  50. CALCIUM [Suspect]
     Active Substance: CALCIUM
     Dosage: UNK, QD, (UNK UNK, QD)
     Route: 065
  51. CALCIUM [Suspect]
     Active Substance: CALCIUM
     Dosage: PHARMACEUTICAL FORM: TABLET
     Route: 048
  52. CALCIUM [Suspect]
     Active Substance: CALCIUM
     Dosage: PHARMACEUTICAL FORM: TABLET
     Route: 048
  53. CALCIUM [Suspect]
     Active Substance: CALCIUM
     Route: 065
  54. CALCIUM [Suspect]
     Active Substance: CALCIUM
     Route: 065
  55. CALCIUM [Suspect]
     Active Substance: CALCIUM
     Route: 065
  56. CISPLATIN [Suspect]
     Active Substance: CISPLATIN
     Indication: Germ cell neoplasm
     Dosage: 79 MG IN 1 LITER (NOT SPECIFIED) (79 MG);1 SEPARATE DOSAGE
     Route: 065
     Dates: start: 20200825
  57. CISPLATIN [Suspect]
     Active Substance: CISPLATIN
     Dosage: 79 MG (IN 1 LITER)
     Route: 065
  58. CHOLECALCIFEROL [Suspect]
     Active Substance: CHOLECALCIFEROL
     Indication: Mineral supplementation
     Dosage: TABLET(1D) / UNK, QD (TABLET(1D)), 1 DF, QD, PHARMACEUTICAL FORM: TABLET (245)
     Route: 065
  59. CHOLECALCIFEROL [Suspect]
     Active Substance: CHOLECALCIFEROL
     Indication: Mineral supplementation
     Dosage: 8 DF, QD.
     Route: 065
  60. CHOLECALCIFEROL [Suspect]
     Active Substance: CHOLECALCIFEROL
     Dosage: UNK, QD, (UNK UNK, QD), TABLET
     Route: 065
  61. CHOLECALCIFEROL [Suspect]
     Active Substance: CHOLECALCIFEROL
     Dosage: TABLET(1D) / UNK, QD (TABLET(1D)), PHARMACEUTICAL FORM: TABLET (245)
     Route: 065
  62. CHOLECALCIFEROL [Suspect]
     Active Substance: CHOLECALCIFEROL
     Dosage: 2 DOSAGE FORM, ONCE A DAY(2 DF, QD)
     Route: 065
  63. CHOLECALCIFEROL [Suspect]
     Active Substance: CHOLECALCIFEROL
     Dosage: 2 DF, QD, DOSAGE FORM: TABLET
     Route: 065
  64. CHOLECALCIFEROL [Suspect]
     Active Substance: CHOLECALCIFEROL
     Dosage: 8 DF, QD, DOSAGE FORM: TABLET
     Route: 065
  65. CHOLECALCIFEROL [Suspect]
     Active Substance: CHOLECALCIFEROL
     Dosage: 8 DF, QD, DOSAGE FORM: TABLET
     Route: 065
  66. CHOLECALCIFEROL [Suspect]
     Active Substance: CHOLECALCIFEROL
     Dosage: 8 DF, QD, DOSAGE FORM: TABLET
     Route: 065
  67. CHOLECALCIFEROL [Suspect]
     Active Substance: CHOLECALCIFEROL
     Dosage: 1 DF, QD, (QD(UNK, QD, (UNK UNK, QD) ), DOSAGE FORM: TABLET
     Route: 065
  68. CHOLECALCIFEROL [Suspect]
     Active Substance: CHOLECALCIFEROL
     Dosage: DOSE: 1 (UNSPECIFIED UNIT); TABLET
     Route: 065
  69. CHOLECALCIFEROL [Suspect]
     Active Substance: CHOLECALCIFEROL
     Dosage: UNK UNK, QD(TABLET(1D) / UNK, QD (TABLET(1D)) )
     Route: 065
  70. CHOLECALCIFEROL [Suspect]
     Active Substance: CHOLECALCIFEROL
     Dosage: 1 DF
     Route: 065
  71. CHOLECALCIFEROL [Suspect]
     Active Substance: CHOLECALCIFEROL
     Dosage: UNK, QD, (UNK UNK, QD)
     Route: 065
  72. CHOLECALCIFEROL [Suspect]
     Active Substance: CHOLECALCIFEROL
     Dosage: 1 DF, QD
     Route: 065
  73. CHOLECALCIFEROL [Suspect]
     Active Substance: CHOLECALCIFEROL
     Route: 065
  74. CHOLECALCIFEROL [Suspect]
     Active Substance: CHOLECALCIFEROL
     Route: 065
  75. CHOLECALCIFEROL [Suspect]
     Active Substance: CHOLECALCIFEROL
     Route: 065
  76. DEXAMETHASONE [Suspect]
     Active Substance: DEXAMETHASONE
     Indication: Supportive care
     Dosage: 8MG, QD, PHARMACEUTICAL FORM: ORAL SOLUTION
     Route: 048
     Dates: start: 20200825
  77. DEXAMETHASONE [Suspect]
     Active Substance: DEXAMETHASONE
     Dosage: 8MG, QD, PHARMACEUTICAL FORM: TABLET
     Route: 048
     Dates: start: 20200825
  78. DEXAMETHASONE [Suspect]
     Active Substance: DEXAMETHASONE
     Dosage: 30 MG, QD
     Route: 048
     Dates: start: 20200825
  79. DEXAMETHASONE [Suspect]
     Active Substance: DEXAMETHASONE
     Route: 048
     Dates: start: 20200825
  80. DOMPERIDONE [Suspect]
     Active Substance: DOMPERIDONE
     Indication: Supportive care
     Dosage: 8 MILLIGRAM QD
     Route: 048
     Dates: start: 20200825
  81. DOMPERIDONE [Suspect]
     Active Substance: DOMPERIDONE
     Dosage: 30 MG, QD, 30 MG, QD (PRN (30 MG,1 D)
     Route: 048
     Dates: start: 20200825
  82. DOMPERIDONE [Suspect]
     Active Substance: DOMPERIDONE
     Dosage: UNK
     Route: 065
  83. DOMPERIDONE [Suspect]
     Active Substance: DOMPERIDONE
     Route: 048
     Dates: start: 20200825
  84. DOMPERIDONE [Suspect]
     Active Substance: DOMPERIDONE
     Route: 048
     Dates: start: 20200825
  85. DIETARY SUPPLEMENT [Suspect]
     Active Substance: DIETARY SUPPLEMENT
     Indication: Nutritional supplementation
     Dosage: TABLETS (1 D); 1DF, PHARMACEUTICAL FORM: TABLET (245)
     Route: 065
  86. DIETARY SUPPLEMENT [Suspect]
     Active Substance: DIETARY SUPPLEMENT
     Dosage: UNK UNK, QD, PHARMACEUTICAL FORM: TABLET (245)
     Route: 065
  87. DIETARY SUPPLEMENT [Suspect]
     Active Substance: DIETARY SUPPLEMENT
     Dosage: 3 DF TABLETS 3UNK, PHARMACEUTICAL FORM: 245 (TABLET)
     Route: 065
  88. DIETARY SUPPLEMENT [Suspect]
     Active Substance: DIETARY SUPPLEMENT
     Dosage: TABLETS 3 UNK
     Route: 065
  89. DIETARY SUPPLEMENT [Suspect]
     Active Substance: DIETARY SUPPLEMENT
     Dosage: 1 DF, PHARMACEUTICAL FORM: TABLET
     Route: 065
  90. DIETARY SUPPLEMENT [Suspect]
     Active Substance: DIETARY SUPPLEMENT
     Dosage: 1 DF, QD TABLETS
     Route: 065
  91. DIETARY SUPPLEMENT [Suspect]
     Active Substance: DIETARY SUPPLEMENT
     Dosage: UNK UNK, QD
     Route: 065
  92. ETOPOSIDE [Suspect]
     Active Substance: ETOPOSIDE
     Indication: Germ cell neoplasm
     Route: 065
     Dates: start: 202007
  93. ETOPOSIDE [Suspect]
     Active Substance: ETOPOSIDE
     Dosage: 360 MG, QD IN 1 LITER 2 BAGS
     Route: 065
     Dates: start: 20200825, end: 20200825
  94. ETOPOSIDE [Suspect]
     Active Substance: ETOPOSIDE
     Dosage: DOSE RE-INTRODUCED
     Route: 065
     Dates: start: 20200825
  95. NAUZELIN [Suspect]
     Active Substance: DOMPERIDONE
     Indication: Supportive care
     Dosage: 30 MG, QD (AS NECESSARY) PRN, PHARMACEUTICAL FORM: TABLET (245)
     Route: 048
     Dates: start: 20200825
  96. NAUZELIN [Suspect]
     Active Substance: DOMPERIDONE
     Dosage: 30 MG, 1D (QD) (AS NECESSARY)
     Route: 048
     Dates: start: 20200825
  97. NAUZELIN [Suspect]
     Active Substance: DOMPERIDONE
     Dosage: 30 MILLIGRAM, QD (30 MG, QD (PRN (30 MG,1 D))
     Route: 048
     Dates: start: 20200825
  98. NAUZELIN [Suspect]
     Active Substance: DOMPERIDONE
     Dosage: UNKNOWN
     Route: 065
  99. NAUZELIN [Suspect]
     Active Substance: DOMPERIDONE
     Dosage: 8 MG, QD(8 MILLIGRAM, QD )
     Route: 048
     Dates: start: 20200825
  100. NAUZELIN [Suspect]
     Active Substance: DOMPERIDONE
     Dosage: 8 MILLIGRAM, QD
     Route: 048
     Dates: start: 20200825
  101. NICOTINE [Suspect]
     Active Substance: NICOTINE
     Indication: Drug therapy
     Dosage: 21 MG, QD, PATCH, EVERY 24 HOURS (21 MG,1 D)
     Route: 065
  102. NICOTINE [Suspect]
     Active Substance: NICOTINE
     Dosage: 21 MG, QD, PATCH, EVERY 24 HOURS (21 MG,1 D)
     Route: 065
  103. NICOTINE [Suspect]
     Active Substance: NICOTINE
     Route: 065
  104. ONDANSETRON [Suspect]
     Active Substance: ONDANSETRON
     Indication: Supportive care
     Dosage: 16 MILLIGRAM, QD (FOR 3 DAYS (16 MG,1 D)), (ORODISPERSIBLE FILM)?FORM: ORAL SOLUTION/CONCENTRATE FOR
     Route: 048
     Dates: start: 20200825
  105. ONDANSETRON [Suspect]
     Active Substance: ONDANSETRON
     Route: 048
     Dates: start: 20200825
  106. PHENYLBUTAZONE [Suspect]
     Active Substance: PHENYLBUTAZONE
     Indication: Hypovitaminosis
     Dosage: 300 MG, QD
     Route: 065
  107. PHENYLBUTAZONE [Suspect]
     Active Substance: PHENYLBUTAZONE
     Indication: Hypovitaminosis
     Dosage: 300 MILLIGRAM, QD
     Route: 065
  108. PHENYLBUTAZONE [Suspect]
     Active Substance: PHENYLBUTAZONE
     Route: 065
  109. PHENYLBUTAZONE [Suspect]
     Active Substance: PHENYLBUTAZONE
     Dosage: 300 MG, QD
     Route: 065
  110. PHENYLBUTAZONE [Suspect]
     Active Substance: PHENYLBUTAZONE
     Route: 065
  111. PROPYPHENAZONE [Suspect]
     Active Substance: PROPYPHENAZONE
     Indication: Hypovitaminosis
     Dosage: 300 MG, QD
     Route: 065
  112. PROPYPHENAZONE [Suspect]
     Active Substance: PROPYPHENAZONE
     Dosage: 300 MILLIGRAM, QD
     Route: 065
  113. PROPYPHENAZONE [Suspect]
     Active Substance: PROPYPHENAZONE
     Dosage: 300 MG, QD
     Route: 065
  114. THIAMINE [Suspect]
     Active Substance: THIAMINE
     Indication: Hypovitaminosis
     Dosage: UNKUNK
     Route: 065
  115. THIAMINE [Suspect]
     Active Substance: THIAMINE
     Dosage: 300 MG, QD
     Route: 065
  116. THIAMINE [Suspect]
     Active Substance: THIAMINE
     Dosage: 1 DF, QD, UNK, UNK, QD
     Route: 065
  117. THIAMINE [Suspect]
     Active Substance: THIAMINE
     Route: 065
  118. THIAMINE MONONITRATE [Suspect]
     Active Substance: THIAMINE MONONITRATE
     Indication: Hypovitaminosis
     Dosage: 300 MG, QD
     Route: 065
  119. THIAMINE MONONITRATE [Suspect]
     Active Substance: THIAMINE MONONITRATE
     Indication: Hypovitaminosis
     Route: 065
  120. ENSURE [Suspect]
     Active Substance: AMINO ACIDS\DEXTROSE\ELECTROLYTES NOS\SOYBEAN OIL\VITAMINS
     Indication: Nutritional supplementation
     Dosage: TABLETS 3UNK, TABLETS (1 D)
     Route: 065
  121. ENSURE [Suspect]
     Active Substance: AMINO ACIDS\DEXTROSE\ELECTROLYTES NOS\SOYBEAN OIL\VITAMINS
     Dosage: TABLETS1 DF
     Route: 065
  122. CALCIUM CARBONATE [Suspect]
     Active Substance: CALCIUM CARBONATE
     Indication: Mineral supplementation
     Dosage: 8 DF, QD
     Route: 065
  123. THIAMINE HYDROCHLORIDE [Suspect]
     Active Substance: THIAMINE HYDROCHLORIDE
     Indication: Nutritional supplementation
     Dosage: 1 DF, DOSAGE FORM: TABLET
     Route: 065
  124. THIAMINE HYDROCHLORIDE [Suspect]
     Active Substance: THIAMINE HYDROCHLORIDE
     Dosage: DOSAGE FORM: TABLET. 300MG,QD
     Route: 065
  125. TRIBASIC CALCIUM PHOSPHATE [Suspect]
     Active Substance: TRIBASIC CALCIUM PHOSPHATE
     Indication: Mineral supplementation
     Route: 065
  126. ASCORBIC ACID [Suspect]
     Active Substance: ASCORBIC ACID
     Indication: Product used for unknown indication
     Dosage: 1 DOSAGE FORM, ONCE A DAY
     Route: 065
  127. BIOTIN [Suspect]
     Active Substance: BIOTIN
     Indication: Product used for unknown indication
     Dosage: 3 DOSAGE FORM, TABLETS 3UNK
     Route: 065
  128. FOLIC ACID [Suspect]
     Active Substance: FOLIC ACID
     Indication: Product used for unknown indication
     Dosage: 1 DOSAGE FORM, ONCE A DAY
     Route: 065
  129. RIBOFLAVIN [Suspect]
     Active Substance: RIBOFLAVIN
     Indication: Product used for unknown indication
     Dosage: 1 DOSAGE FORM, ONCE A DAY
     Route: 065
  130. MAGNESIUM CHLORIDE [Suspect]
     Active Substance: MAGNESIUM CHLORIDE
     Indication: Product used for unknown indication
     Dosage: 1 DOSAGE FORM, ONCE A DAY
     Route: 065
  131. SODIUM POLYMETAPHOSPHATE [Suspect]
     Active Substance: SODIUM POLYMETAPHOSPHATE
     Indication: Product used for unknown indication
     Dosage: 3 DOSAGE FORM, TABLETS 3UNK
     Route: 065
  132. POTASSIUM IODIDE [Suspect]
     Active Substance: POTASSIUM IODIDE
     Indication: Product used for unknown indication
     Dosage: 1 DOSAGE FORM, ONCE A DAY
     Route: 065
  133. POTASSIUM CHLORIDE [Suspect]
     Active Substance: POTASSIUM CHLORIDE
     Indication: Product used for unknown indication
     Dosage: 1 DOSAGE FORM, ONCE A DAY
     Route: 065
  134. CUPRIC SULFATE ANHYDROUS [Suspect]
     Active Substance: CUPRIC SULFATE ANHYDROUS
     Indication: Product used for unknown indication
     Dosage: 1 DOSAGE FORM, ONCE A DAY
     Route: 065
  135. CYANOCOBALAMIN [Suspect]
     Active Substance: CYANOCOBALAMIN
     Indication: Product used for unknown indication
     Dosage: 1 DOSAGE FORM, ONCE A DAY
     Route: 065
  136. PYRIDOXINE HYDROCHLORIDE [Suspect]
     Active Substance: PYRIDOXINE HYDROCHLORIDE
     Indication: Product used for unknown indication
     Dosage: 1 DOSAGE FORM, ONCE A DAY
     Route: 065
  137. LINOLEIC ACID [Suspect]
     Active Substance: LINOLEIC ACID
     Indication: Product used for unknown indication
     Dosage: 3 DOSAGE FORM, TABLETS 3UNK
     Route: 065
  138. MANGANESE CHLORIDE [Suspect]
     Active Substance: MANGANESE CHLORIDE
     Indication: Product used for unknown indication
     Dosage: 1 DOSAGE FORM, ONCE A DAY
     Route: 065
  139. CARBOHYDRATES [Suspect]
     Active Substance: CARBOHYDRATES
     Indication: Product used for unknown indication
     Dosage: 1 DOSAGE FORM, ONCE A DAY
     Route: 065
  140. FERROUS SULFATE [Suspect]
     Active Substance: FERROUS SULFATE
     Indication: Product used for unknown indication
     Dosage: 1 DOSAGE FORM, ONCE A DAY
     Route: 065
  141. POTASSIUM CITRATE [Suspect]
     Active Substance: POTASSIUM CITRATE
     Indication: Product used for unknown indication
     Dosage: 1 DOSAGE FORM, ONCE A DAY
     Route: 065
  142. .ALPHA.-TOCOPHEROL ACETATE [Suspect]
     Active Substance: .ALPHA.-TOCOPHEROL ACETATE
     Indication: Product used for unknown indication
     Dosage: 1 DOSAGE FORM, ONCE A DAY
     Route: 065
  143. PHYTONADIONE [Suspect]
     Active Substance: PHYTONADIONE
     Indication: Product used for unknown indication
     Dosage: 1 DOSAGE FORM, ONCE A DAY
     Route: 065
  144. SOYBEAN OIL [Suspect]
     Active Substance: SOYBEAN OIL
     Indication: Product used for unknown indication
     Dosage: 1 DOSAGE FORM, ONCE A DAY
     Route: 065
  145. CALCIUM PANTOTHENATE [Suspect]
     Active Substance: CALCIUM PANTOTHENATE
     Indication: Product used for unknown indication
     Dosage: 1 DOSAGE FORM, ONCE A DAY
     Route: 065
  146. ZINC SULFATE [Suspect]
     Active Substance: ZINC SULFATE
     Indication: Product used for unknown indication
     Dosage: 1 DOSAGE FORM, ONCE A DAY
     Route: 065
  147. VITAMIN A PALMITATE [Suspect]
     Active Substance: VITAMIN A PALMITATE
     Indication: Product used for unknown indication
     Dosage: 1 DOSAGE FORM, ONCE A DAY
     Route: 065
  148. ERGOCALCIFEROL [Suspect]
     Active Substance: ERGOCALCIFEROL
     Indication: Product used for unknown indication
     Dosage: 1 DOSAGE FORM, ONCE A DAY
     Route: 065
  149. PROTEIN [Suspect]
     Active Substance: PROTEIN
     Indication: Product used for unknown indication
     Dosage: 1 DOSAGE FORM, ONCE A DAY
     Route: 065
  150. NICOTINAMIDE [Suspect]
     Active Substance: NIACINAMIDE
     Indication: Product used for unknown indication
     Dosage: 1 DOSAGE FORM, ONCE A DAY
     Route: 065
  151. THIAMINE MONONITRATE [Suspect]
     Active Substance: THIAMINE MONONITRATE
     Indication: Hypovitaminosis
     Dosage: 300 MILLIGRAM, ONCE A DAY
     Route: 065
  152. THIAMINE MONONITRATE [Suspect]
     Active Substance: THIAMINE MONONITRATE
     Indication: Hypovitaminosis
     Route: 065
  153. ARCOXIA [Suspect]
     Active Substance: ETORICOXIB
     Indication: Product used for unknown indication
     Route: 065
  154. CALCIUM CARBONATE [Suspect]
     Active Substance: CALCIUM CARBONATE
     Indication: Product used for unknown indication
     Route: 065
  155. CALCIUM CARBONATE [Suspect]
     Active Substance: CALCIUM CARBONATE
     Route: 065
  156. CALCIUM PHOSPHATE [Suspect]
     Active Substance: CALCIUM PHOSPHATE
     Indication: Mineral supplementation
     Route: 065
  157. COCODAMOL [Suspect]
     Active Substance: ACETAMINOPHEN\CODEINE PHOSPHATE
     Indication: Product used for unknown indication
     Route: 065
  158. CALCIUM CARBONATE\CHOLECALCIFEROL [Suspect]
     Active Substance: CALCIUM CARBONATE\CHOLECALCIFEROL
     Indication: Mineral supplementation
     Route: 065
  159. CALCIUM CARBONATE\CHOLECALCIFEROL [Suspect]
     Active Substance: CALCIUM CARBONATE\CHOLECALCIFEROL
     Route: 065
  160. CALCIUM CARBONATE\CHOLECALCIFEROL [Suspect]
     Active Substance: CALCIUM CARBONATE\CHOLECALCIFEROL
     Route: 065

REACTIONS (9)
  - Barrett^s oesophagus [Unknown]
  - Abdominal distension [Unknown]
  - Vitamin B12 deficiency [Unknown]
  - Regurgitation [Unknown]
  - Dyspepsia [Unknown]
  - Neck pain [Unknown]
  - Oropharyngeal discomfort [Unknown]
  - Eructation [Unknown]
  - Hypersensitivity [Recovered/Resolved]

NARRATIVE: CASE EVENT DATE: 20200825
